FAERS Safety Report 23798444 (Version 2)
Quarter: 2024Q2

REPORT INFORMATION
  Report Type: Spontaneous
  Country: IN (occurrence: IN)
  Receive Date: 20240430
  Receipt Date: 20240528
  Transmission Date: 20240716
  Serious: Yes (Death)
  Sender: FDA-Public Use
  Company Number: IN-PFIZER INC-PV202400046267

PATIENT
  Age: 23 Year
  Sex: Male

DRUGS (2)
  1. INOTUZUMAB OZOGAMICIN [Suspect]
     Active Substance: INOTUZUMAB OZOGAMICIN
     Dosage: 1 MG
     Route: 048
  2. INOTUZUMAB OZOGAMICIN [Suspect]
     Active Substance: INOTUZUMAB OZOGAMICIN
     Dosage: 1 MG
     Route: 042
     Dates: start: 20240327

REACTIONS (1)
  - Death [Fatal]

NARRATIVE: CASE EVENT DATE: 20240416
